FAERS Safety Report 5987936-5 (Version None)
Quarter: 2008Q4

REPORT INFORMATION
  Report Type: 
  Country: None (occurrence: None)
  Receive Date: 20081210
  Receipt Date: 20081128
  Transmission Date: 20090506
  Serious: Yes (Death, Hospitalization)
  Sender: FDA-Public Use
  Company Number: IT-AMGEN-UK252814

PATIENT
  Sex: Male

DRUGS (4)
  1. PANITUMUMAB [Suspect]
     Indication: COLORECTAL CANCER
     Route: 042
     Dates: start: 20071011, end: 20071011
  2. IRINOTECAN HYDROCHLORIDE [Suspect]
     Dates: start: 20071011, end: 20071011
  3. FOLINIC ACID [Suspect]
     Dates: start: 20071011, end: 20071011
  4. FLUOROURACIL [Suspect]
     Dates: start: 20071011, end: 20071011

REACTIONS (4)
  - ASTHENIA [None]
  - BACK PAIN [None]
  - DISEASE PROGRESSION [None]
  - GENERALISED OEDEMA [None]
